FAERS Safety Report 6406987-X (Version None)
Quarter: 2009Q4

REPORT INFORMATION
  Report Type: 
  Country: None (occurrence: None)
  Receive Date: 20091020
  Receipt Date: 20091006
  Transmission Date: 20100525
  Serious: Yes (Other)
  Sender: FDA-Public Use
  Company Number: PHHY2009BR42986

PATIENT
  Age: 42 Year
  Sex: Female

DRUGS (2)
  1. DIOVAN HCT [Suspect]
     Indication: HYPERTENSION
     Dosage: 1 TABLET (160/12.5 MG)/DAY
     Route: 048
  2. DIOVAN HCT [Suspect]
     Dosage: 1 TABLET (160/25 MG)/ DAY
     Route: 048
     Dates: start: 20090929, end: 20091004

REACTIONS (10)
  - DRUG DISPENSING ERROR [None]
  - EYE SWELLING [None]
  - FLUID RETENTION [None]
  - GENERALISED OEDEMA [None]
  - HEADACHE [None]
  - OEDEMA PERIPHERAL [None]
  - SENSATION OF HEAVINESS [None]
  - SENSORY DISTURBANCE [None]
  - SWELLING FACE [None]
  - URINE OUTPUT DECREASED [None]
